FAERS Safety Report 9215066 (Version 3)
Quarter: 2013Q2

REPORT INFORMATION
  Report Type: Report from Study
  Country: US (occurrence: US)
  Receive Date: 20130405
  Receipt Date: 20130516
  Transmission Date: 20140414
  Serious: Yes (Hospitalization, Other)
  Sender: FDA-Public Use
  Company Number: US-ABBOTT-13P-163-1069661-00

PATIENT
  Sex: Male
  Weight: 75.82 kg

DRUGS (12)
  1. HUMIRA [Suspect]
     Indication: CROHN^S DISEASE
     Route: 058
     Dates: start: 201212, end: 201212
  2. HUMIRA [Suspect]
     Route: 058
     Dates: start: 201212, end: 201212
  3. HUMIRA [Suspect]
     Route: 058
     Dates: start: 201301
  4. BENTYL [Concomitant]
     Indication: MUSCLE SPASMS
  5. PRINIVIL [Concomitant]
     Indication: BLOOD PRESSURE
  6. NORVASC [Concomitant]
     Indication: BLOOD PRESSURE
  7. OMEPRAZOLE [Concomitant]
     Indication: DYSPEPSIA
  8. ZENPEP [Concomitant]
     Indication: AMINO ACID METABOLISM DISORDER
  9. APRESOLINE [Concomitant]
     Indication: HYPERTENSION
     Dosage: EVERY 6 HOURS
     Route: 048
  10. RISPERDAL [Concomitant]
     Indication: PRODUCT USED FOR UNKNOWN INDICATION
     Route: 048
  11. CEFTRIAXONE [Concomitant]
     Indication: PRODUCT USED FOR UNKNOWN INDICATION
     Dosage: EVERY 24 HOURS, IV SOLR
     Route: 042
  12. NORVASC [Concomitant]
     Indication: PRODUCT USED FOR UNKNOWN INDICATION
     Route: 048

REACTIONS (19)
  - Loss of consciousness [Recovered/Resolved]
  - Asthma [Unknown]
  - Fall [Unknown]
  - Head injury [Recovering/Resolving]
  - Dyspnoea [Unknown]
  - Escherichia sepsis [Unknown]
  - Exposure to extreme temperature [Unknown]
  - Mental status changes [Unknown]
  - Anaemia [Unknown]
  - Facial bones fracture [Unknown]
  - Metabolic acidosis [Recovered/Resolved]
  - Renal failure acute [Recovered/Resolved]
  - Rhabdomyolysis [Recovered/Resolved]
  - Respiratory failure [Unknown]
  - Abdominal pain [Unknown]
  - Diarrhoea [Unknown]
  - Abdominal pain [Unknown]
  - Hypertension [Unknown]
  - White blood cell count increased [Unknown]
